FAERS Safety Report 12621964 (Version 1)
Quarter: 2016Q3

REPORT INFORMATION
  Report Type: Spontaneous
  Country: US (occurrence: None)
  Receive Date: 20160803
  Receipt Date: 20160803
  Transmission Date: 20161109
  Serious: Yes (Death)
  Sender: FDA-Public Use
  Company Number: None

PATIENT
  Age: 80 Year
  Sex: Female
  Weight: 78 kg

DRUGS (2)
  1. WARFARIN [Suspect]
     Active Substance: WARFARIN
     Route: 048
  2. ENOXAPARIN [Suspect]
     Active Substance: ENOXAPARIN
     Route: 058

REACTIONS (7)
  - Mental disorder [None]
  - Pulseless electrical activity [None]
  - Haemoglobin decreased [None]
  - Anuria [None]
  - International normalised ratio increased [None]
  - General physical health deterioration [None]
  - Urinary tract infection [None]

NARRATIVE: CASE EVENT DATE: 20150610
